FAERS Safety Report 19396594 (Version 1)
Quarter: 2021Q2

REPORT INFORMATION
  Report Type: Other
  Country: HU (occurrence: HU)
  Receive Date: 20210610
  Receipt Date: 20210610
  Transmission Date: 20210717
  Serious: Yes (Other)
  Sender: FDA-Public Use
  Company Number: HU-CELLTRION INC.-2021HU007578

PATIENT

DRUGS (8)
  1. REVLIMID [Concomitant]
     Active Substance: LENALIDOMIDE
     Indication: PRODUCT USED FOR UNKNOWN INDICATION
     Dosage: UNK
     Route: 065
  2. VENETOCLAX. [Concomitant]
     Active Substance: VENETOCLAX
     Indication: PALLIATIVE CARE
     Dosage: UNK
     Route: 065
     Dates: start: 2020
  3. VIDAZA [Concomitant]
     Active Substance: AZACITIDINE
     Indication: PALLIATIVE CARE
     Dosage: UNK
     Route: 065
     Dates: start: 202102
  4. MEROPENEM. [Concomitant]
     Active Substance: MEROPENEM
     Indication: INFLAMMATION
     Dosage: UNK
     Route: 065
  5. DEXAMETHASONE. [Suspect]
     Active Substance: DEXAMETHASONE
     Indication: PALLIATIVE CARE
     Route: 065
  6. JAKAVI [Suspect]
     Active Substance: RUXOLITINIB
     Indication: PALLIATIVE CARE
     Dosage: UNK (DATE OF LAST ADMINISTRATION: FEB 2021)
     Route: 065
  7. RITUXIMAB (UNKNOWN) [Suspect]
     Active Substance: RITUXIMAB
     Indication: PALLIATIVE CARE
     Dosage: UNK (DATE OF LAST ADMINISTRATION: FEB 2021)
     Route: 065
  8. REVLIMID [Concomitant]
     Active Substance: LENALIDOMIDE
     Dosage: 1 MG (1X)
     Route: 065
     Dates: start: 20160201

REACTIONS (4)
  - Off label use [Unknown]
  - Acute myeloid leukaemia [Unknown]
  - Product use in unapproved indication [Unknown]
  - Monocytosis [Recovered/Resolved]

NARRATIVE: CASE EVENT DATE: 20200103
